FAERS Safety Report 9152515 (Version 3)
Quarter: 2018Q3

REPORT INFORMATION
  Report Type: Spontaneous
  Country: US (occurrence: US)
  Receive Date: 20130308
  Receipt Date: 20180910
  Transmission Date: 20181010
  Serious: No
  Sender: FDA-Public Use
  Company Number: US-PFIZER INC-2013079399

PATIENT
  Age: 51 Year
  Sex: Male
  Weight: 88 kg

DRUGS (1)
  1. VIAGRA [Suspect]
     Active Substance: SILDENAFIL CITRATE
     Indication: ERECTILE DYSFUNCTION
     Dosage: 100 MG, AS NEEDED
     Route: 048

REACTIONS (6)
  - Product physical consistency issue [Unknown]
  - Intentional product misuse [Unknown]
  - Suspected counterfeit product [Unknown]
  - Expired product administered [Unknown]
  - Drug effect incomplete [Unknown]
  - Product quality issue [Unknown]
